FAERS Safety Report 14028875 (Version 3)
Quarter: 2018Q1

REPORT INFORMATION
  Report Type: Report from Study
  Country: US (occurrence: US)
  Receive Date: 20170930
  Receipt Date: 20180312
  Transmission Date: 20180508
  Serious: Yes (Other)
  Sender: FDA-Public Use
  Company Number: US-SA-2017SA092355

PATIENT
  Age: 46 Year
  Sex: Female

DRUGS (9)
  1. RANITIDINE. [Concomitant]
     Active Substance: RANITIDINE
  2. DULOXETINE. [Concomitant]
     Active Substance: DULOXETINE
  3. RITALIN [Concomitant]
     Active Substance: METHYLPHENIDATE HYDROCHLORIDE
  4. VITAMIN D2 [Concomitant]
     Active Substance: ERGOCALCIFEROL
  5. AUBAGIO [Suspect]
     Active Substance: TERIFLUNOMIDE
     Indication: MULTIPLE SCLEROSIS
     Route: 048
     Dates: start: 20170415, end: 201803
  6. GABAPENTIN. [Concomitant]
     Active Substance: GABAPENTIN
  7. NAPROXEN. [Concomitant]
     Active Substance: NAPROXEN
  8. BACLOFEN. [Concomitant]
     Active Substance: BACLOFEN
  9. BUSPIRON [Concomitant]
     Active Substance: BUSPIRONE HYDROCHLORIDE

REACTIONS (8)
  - Anxiety [Unknown]
  - Cough [Unknown]
  - Chest pain [Unknown]
  - Breast cancer [Unknown]
  - Dysphagia [Unknown]
  - Throat irritation [Unknown]
  - Dyspnoea [Unknown]
  - Choking sensation [Unknown]
